FAERS Safety Report 17134969 (Version 3)
Quarter: 2020Q2

REPORT INFORMATION
  Report Type: Report from Study
  Country: US (occurrence: US)
  Receive Date: 20191210
  Receipt Date: 20200615
  Transmission Date: 20200713
  Serious: No
  Sender: FDA-Public Use
  Company Number: NVSC2019US064842

PATIENT
  Sex: Female

DRUGS (1)
  1. COSENTYX [Suspect]
     Active Substance: SECUKINUMAB
     Indication: PSORIASIS
     Dosage: 300 MG, QMO (SQ ONCE EVERY 4 WEEKS.)
     Route: 065
     Dates: start: 20190101

REACTIONS (3)
  - Alopecia [Not Recovered/Not Resolved]
  - Tremor [Unknown]
  - Nasopharyngitis [Unknown]
